FAERS Safety Report 15114628 (Version 2)
Quarter: 2021Q1

REPORT INFORMATION
  Report Type: Spontaneous
  Country: CA (occurrence: CA)
  Receive Date: 20180706
  Receipt Date: 20210123
  Transmission Date: 20210419
  Serious: Yes (Other)
  Sender: FDA-Public Use
  Company Number: CA-ROCHE-2147128

PATIENT
  Age: 64 Year
  Sex: Male

DRUGS (3)
  1. PEGASYS [Suspect]
     Active Substance: PEGINTERFERON ALFA-2A
     Indication: CHRONIC HEPATITIS C
     Dosage: THERAPY DURATION WAS FOR 85 DAYS?SOLUTION SUBCUTANEOUS
     Route: 058
  2. SOFOSBUVIR [Suspect]
     Active Substance: SOFOSBUVIR
     Indication: CHRONIC HEPATITIS C
     Dosage: DOSAGE FORM NOT SPECIFIED?THERAPY DURATION WAS FOR 85 DAYS.
     Route: 048
  3. SOVALDI [Suspect]
     Active Substance: SOFOSBUVIR
     Indication: CHRONIC HEPATITIS C
     Route: 048

REACTIONS (2)
  - Treatment failure [Unknown]
  - Drug ineffective [Unknown]
